FAERS Safety Report 8410529 (Version 2)
Quarter: 2013Q2

REPORT INFORMATION
  Report Type: Spontaneous
  Country: US (occurrence: None)
  Receive Date: 20111227
  Receipt Date: 20120426
  Transmission Date: 20140414
  Serious: Yes (Other)
  Sender: FDA-Public Use
  Company Number: PHEH2011US04343

PATIENT
  Age: 52 Year
  Sex: Male
  Weight: 111.1 kg

DRUGS (2)
  1. GILENYA [Suspect]
     Indication: MULTIPLE SCLEROSIS
     Dosage: 0.5 MG, QD, ORAL
     Route: 048
     Dates: start: 20110908
  2. RITALIN [Concomitant]

REACTIONS (3)
  - NERVOUSNESS [None]
  - VISION BLURRED [None]
  - Multiple sclerosis relapse [None]
